FAERS Safety Report 6570408-7 (Version None)
Quarter: 2010Q1

REPORT INFORMATION
  Report Type: 
  Country: None (occurrence: None)
  Receive Date: 20100204
  Receipt Date: 20090619
  Transmission Date: 20100710
  Serious: No
  Sender: FDA-Public Use
  Company Number: A0771532A

PATIENT
  Age: 56 Year
  Sex: Female

DRUGS (12)
  1. ARIXTRA [Suspect]
     Dosage: 10MG PER DAY
     Route: 058
  2. PROVICAL [Concomitant]
  3. MARPLEX [Concomitant]
  4. ALLEGRA [Concomitant]
  5. ZOLOFT [Concomitant]
  6. TOPAMAX [Concomitant]
  7. LUNESTA [Concomitant]
  8. UNKNOWN MEDICATION [Concomitant]
  9. ATARAX [Concomitant]
  10. PREVACID [Concomitant]
  11. ULTRAM [Concomitant]
  12. NEURONTIN [Concomitant]

REACTIONS (2)
  - INJECTION SITE PAIN [None]
  - PRODUCT QUALITY ISSUE [None]
